FAERS Safety Report 23519722 (Version 1)
Quarter: 2024Q1

REPORT INFORMATION
  Report Type: 
  Country: None (occurrence: None)
  Receive Date: 20240213
  Receipt Date: 20240213
  Transmission Date: 20240410
  Serious: No
  Sender: FDA-Public Use
  Company Number: GR-BoehringerIngelheim-2024-BI-006525

PATIENT

DRUGS (1)
  1. ALTEPLASE [Suspect]
     Active Substance: ALTEPLASE

REACTIONS (2)
  - General physical health deterioration [None]
  - Blood pressure decreased [None]
